FAERS Safety Report 18543370 (Version 1)
Quarter: 2020Q4

REPORT INFORMATION
  Report Type: Spontaneous
  Country: JP (occurrence: JP)
  Receive Date: 20201124
  Receipt Date: 20201124
  Transmission Date: 20210114
  Serious: Yes (Other)
  Sender: FDA-Public Use
  Company Number: JP-SHIRE-JP201901391

PATIENT
  Age: 14 Year
  Sex: Female

DRUGS (1)
  1. 476 (MESALAZINE/MESALAMINE) [Suspect]
     Active Substance: MESALAMINE
     Indication: COLITIS ULCERATIVE
     Dosage: 100 MG/KG, 1X/DAY:QD
     Route: 048

REACTIONS (3)
  - Toxicity to various agents [Recovered/Resolved]
  - Tubulointerstitial nephritis [Recovered/Resolved]
  - Nephritis bacterial [Recovered/Resolved]
